FAERS Safety Report 16154967 (Version 6)
Quarter: 2025Q2

REPORT INFORMATION
  Report Type: Spontaneous
  Country: BR (occurrence: BR)
  Receive Date: 20190403
  Receipt Date: 20250527
  Transmission Date: 20250717
  Serious: Yes (Hospitalization)
  Sender: BIOGEN
  Company Number: BR-BIOGEN-2017BI00377755

PATIENT
  Age: 24 Year
  Sex: Female
  Weight: 88 kg

DRUGS (8)
  1. AVONEX [Suspect]
     Active Substance: INTERFERON BETA-1A
     Indication: Multiple sclerosis
     Route: 050
     Dates: start: 2010
  2. AVONEX [Suspect]
     Active Substance: INTERFERON BETA-1A
  3. AVONEX [Suspect]
     Active Substance: INTERFERON BETA-1A
  4. AVONEX [Suspect]
     Active Substance: INTERFERON BETA-1A
  5. AVONEX [Suspect]
     Active Substance: INTERFERON BETA-1A
     Indication: Multiple sclerosis
     Route: 050
     Dates: end: 2015
  6. AVONEX [Suspect]
     Active Substance: INTERFERON BETA-1A
  7. AVONEX [Suspect]
     Active Substance: INTERFERON BETA-1A
  8. AVONEX [Suspect]
     Active Substance: INTERFERON BETA-1A

REACTIONS (6)
  - Multiple sclerosis relapse [Recovered/Resolved]
  - Fall [Recovered/Resolved]
  - Drug ineffective [Recovered/Resolved]
  - Injection site pain [Recovered/Resolved]
  - Drug specific antibody present [Unknown]
  - Drug intolerance [Unknown]

NARRATIVE: CASE EVENT DATE: 20100401
